FAERS Safety Report 24202754 (Version 1)
Quarter: 2024Q3

REPORT INFORMATION
  Report Type: Spontaneous
  Country: US (occurrence: US)
  Receive Date: 20240813
  Receipt Date: 20240813
  Transmission Date: 20241017
  Serious: No
  Sender: GLENMARK
  Company Number: US-GLENMARK PHARMACEUTICALS-2024GMK090191

PATIENT

DRUGS (2)
  1. ADAPALENE [Suspect]
     Active Substance: ADAPALENE
     Indication: Acne
     Dosage: UNK, OD AT NIGHT
     Route: 065
     Dates: start: 20240403, end: 20240408
  2. LA ROCHE POSAY LABORATOIRE DERMATOLOGIQUE EFFACLAR DUO ACNE TREATMENT [Suspect]
     Active Substance: BENZOYL PEROXIDE
     Indication: Acne
     Dosage: UNK
     Route: 065

REACTIONS (6)
  - Application site inflammation [Unknown]
  - Application site exfoliation [Recovering/Resolving]
  - Application site erythema [Unknown]
  - Application site dryness [Unknown]
  - Acne [Unknown]
  - Application site pain [Recovering/Resolving]
